FAERS Safety Report 22379624 (Version 1)
Quarter: 2023Q2

REPORT INFORMATION
  Report Type: Spontaneous
  Country: US (occurrence: US)
  Receive Date: 20230529
  Receipt Date: 20230529
  Transmission Date: 20230721
  Serious: Yes (Hospitalization, Other)
  Sender: FDA-Public Use
  Company Number: US-MLMSERVICE-20230424-4247692-1

PATIENT
  Age: 51 Year
  Sex: Female

DRUGS (2)
  1. CAPECITABINE [Suspect]
     Active Substance: CAPECITABINE
     Indication: Mucinous cystadenocarcinoma ovary
     Dosage: 1000 MG/M2, QD, DAYS 1-14 EVERY CYCLE
     Route: 048
  2. OXALIPLATIN [Suspect]
     Active Substance: OXALIPLATIN
     Indication: Mucinous cystadenocarcinoma ovary
     Dosage: 130 MG/M2, QCY

REACTIONS (5)
  - Cachexia [Unknown]
  - Drug intolerance [Unknown]
  - Constipation [Unknown]
  - Vomiting [Unknown]
  - Nausea [Unknown]
